FAERS Safety Report 19705156 (Version 1)
Quarter: 2021Q3

REPORT INFORMATION
  Report Type: Spontaneous
  Country: US (occurrence: US)
  Receive Date: 20210815
  Receipt Date: 20210815
  Transmission Date: 20211014
  Serious: Yes (Hospitalization)
  Sender: FDA-Public Use
  Company Number: None

PATIENT
  Age: 58 Year
  Sex: Female

DRUGS (1)
  1. REBIF [Suspect]
     Active Substance: INTERFERON BETA-1A
     Indication: MULTIPLE SCLEROSIS
     Dosage: ?          OTHER DOSE:44MCG/0.5ML;?
     Route: 058
     Dates: start: 20201023

REACTIONS (3)
  - Intentional dose omission [None]
  - Urinary tract infection pseudomonal [None]
  - Therapy non-responder [None]

NARRATIVE: CASE EVENT DATE: 202012
